FAERS Safety Report 10874123 (Version 3)
Quarter: 2015Q2

REPORT INFORMATION
  Report Type: Spontaneous
  Country: US (occurrence: US)
  Receive Date: 20150227
  Receipt Date: 20150506
  Transmission Date: 20150821
  Serious: Yes (Hospitalization, Other)
  Sender: FDA-Public Use
  Company Number: US-PFIZER INC-2015071896

PATIENT
  Age: 73 Year
  Sex: Male
  Weight: 95 kg

DRUGS (6)
  1. LISINOPRIL. [Suspect]
     Active Substance: LISINOPRIL
     Indication: HYPOTENSION
     Dosage: UNK
     Dates: start: 201407
  2. POTASSIUM [Concomitant]
     Active Substance: POTASSIUM
     Dosage: UNK
  3. FUROSEMIDE. [Concomitant]
     Active Substance: FUROSEMIDE
     Dosage: 25 MG, UNK
  4. SPIRONOLACTONE. [Suspect]
     Active Substance: SPIRONOLACTONE
     Indication: DIURETIC THERAPY
     Dosage: 25 MG, DAILY
     Route: 048
     Dates: start: 2011, end: 20150418
  5. ASPIRIN. [Concomitant]
     Active Substance: ASPIRIN
     Dosage: 81 MG, 1X/DAY
  6. LISINOPRIL. [Suspect]
     Active Substance: LISINOPRIL
     Indication: HEART RATE DECREASED

REACTIONS (21)
  - Hyperadrenalism [Unknown]
  - Fracture [Not Recovered/Not Resolved]
  - Muscle spasms [Unknown]
  - Blood potassium increased [Unknown]
  - Abdominal pain upper [Unknown]
  - Fatigue [Unknown]
  - Decreased appetite [Unknown]
  - Hypotension [Recovered/Resolved]
  - Chills [Unknown]
  - Constipation [Unknown]
  - Cholelithiasis [Unknown]
  - Spinal disorder [Not Recovered/Not Resolved]
  - Bone cancer metastatic [Unknown]
  - Dyspnoea [Unknown]
  - Blood potassium decreased [Unknown]
  - Cough [Unknown]
  - Yellow skin [Unknown]
  - Heart rate decreased [Recovered/Resolved]
  - Muscle twitching [Unknown]
  - Back pain [Unknown]
  - Breast pain [Unknown]

NARRATIVE: CASE EVENT DATE: 201412
